FAERS Safety Report 7999145-9 (Version None)
Quarter: 2011Q4

REPORT INFORMATION
  Report Type: 
  Country: None (occurrence: None)
  Receive Date: 20111221
  Receipt Date: 20111212
  Transmission Date: 20120403
  Serious: Yes (Other)
  Sender: FDA-Public Use
  Company Number: US-ASTRAZENECA-2009SE19674

PATIENT
  Age: 36 Year
  Sex: Female
  Weight: 61.2 kg

DRUGS (5)
  1. AMBIEN [Concomitant]
     Indication: INSOMNIA
  2. ABILIFY [Suspect]
  3. EFFEXOR [Concomitant]
  4. SEROQUEL [Suspect]
     Route: 048
  5. SEROQUEL [Suspect]
     Route: 048

REACTIONS (6)
  - APATHY [None]
  - FEELING OF DESPAIR [None]
  - SUICIDAL IDEATION [None]
  - DRUG DOSE OMISSION [None]
  - CRYING [None]
  - INAPPROPRIATE SCHEDULE OF DRUG ADMINISTRATION [None]
